FAERS Safety Report 23758699 (Version 1)
Quarter: 2024Q2

REPORT INFORMATION
  Report Type: Spontaneous
  Country: US (occurrence: None)
  Receive Date: 20240418
  Receipt Date: 20240418
  Transmission Date: 20240716
  Serious: No
  Sender: FDA-Public Use
  Company Number: US-ROCHE-3353672

PATIENT
  Age: 59 Year
  Sex: Female
  Weight: 105.33 kg

DRUGS (2)
  1. AVASTIN [Suspect]
     Active Substance: BEVACIZUMAB
     Indication: Diabetic retinopathy
     Dosage: FREQUENCY: ONE
     Route: 031
     Dates: start: 202301
  2. ASPIRIN [Concomitant]
     Active Substance: ASPIRIN
     Indication: Thrombosis prophylaxis
     Dates: start: 202110

REACTIONS (8)
  - Off label use [Unknown]
  - Ocular hyperaemia [Not Recovered/Not Resolved]
  - Nasopharyngitis [Recovered/Resolved with Sequelae]
  - Sinusitis [Recovering/Resolving]
  - Nasal polyps [Recovering/Resolving]
  - Malaise [Unknown]
  - Intraocular pressure increased [Unknown]
  - Retinal oedema [Unknown]

NARRATIVE: CASE EVENT DATE: 20230101
